FAERS Safety Report 8245050-2 (Version None)
Quarter: 2012Q1

REPORT INFORMATION
  Report Type: 
  Country: None (occurrence: None)
  Receive Date: 20120329
  Receipt Date: 20101115
  Transmission Date: 20120608
  Serious: Yes (Hospitalization)
  Sender: FDA-Public Use
  Company Number: US-GLAXOSMITHKLINE-A0894448A

PATIENT
  Age: 57 Year
  Sex: Female
  Weight: 62.3 kg

DRUGS (6)
  1. PROTONIX [Concomitant]
  2. COMBIVENT [Concomitant]
  3. GLYBURIDE [Concomitant]
  4. ADVAIR DISKUS 100/50 [Concomitant]
  5. AVANDIA [Suspect]
     Indication: DIABETES MELLITUS
     Dosage: 4MG PER DAY
     Route: 048
     Dates: start: 20020101, end: 20070608
  6. PAXIL CR [Concomitant]

REACTIONS (3)
  - TRANSIENT ISCHAEMIC ATTACK [None]
  - CARDIOVASCULAR DISORDER [None]
  - CEREBROVASCULAR ACCIDENT [None]
